FAERS Safety Report 8590243-8 (Version None)
Quarter: 2012Q3

REPORT INFORMATION
  Report Type: 
  Country: None (occurrence: None)
  Receive Date: 20120813
  Receipt Date: 20120801
  Transmission Date: 20120928
  Serious: Yes (Hospitalization)
  Sender: FDA-Public Use
  Company Number: FR-BRISTOL-MYERS SQUIBB COMPANY-16836330

PATIENT
  Age: 66 Year
  Sex: Male

DRUGS (4)
  1. SUSTIVA [Suspect]
     Route: 048
     Dates: start: 20080701, end: 20100501
  2. ATRIPLA [Suspect]
     Route: 048
     Dates: start: 20100501
  3. PRAVASTATIN [Suspect]
     Route: 048
  4. TRUVADA [Suspect]
     Route: 048
     Dates: start: 20080701, end: 20100501

REACTIONS (2)
  - SIALOADENITIS [None]
  - SALIVARY GLAND CALCULUS [None]
